FAERS Safety Report 9354190 (Version 1)
Quarter: 2013Q2

REPORT INFORMATION
  Report Type: Spontaneous
  Country: IT (occurrence: IT)
  Receive Date: 20130618
  Receipt Date: 20130618
  Transmission Date: 20140414
  Serious: Yes (Hospitalization)
  Sender: FDA-Public Use
  Company Number: IT-GLAXOSMITHKLINE-B0900304A

PATIENT
  Age: 66 Year
  Sex: Male

DRUGS (6)
  1. FLUSPIRAL [Suspect]
     Indication: EAR PAIN
     Route: 055
     Dates: start: 20130422, end: 20130422
  2. AUGMENTIN [Suspect]
     Indication: INFLUENZA
     Route: 048
     Dates: start: 20130422, end: 20130422
  3. FLUIMUCIL [Suspect]
     Indication: EAR PAIN
     Dates: start: 20130422, end: 20130422
  4. PARACETAMOL + CAFFEINE [Suspect]
     Indication: INFLUENZA
     Dosage: 1000MG PER DAY
     Route: 048
     Dates: start: 20130422, end: 20130422
  5. CARDIOASPIRIN [Concomitant]
  6. BIFRIL [Concomitant]

REACTIONS (3)
  - Rash pruritic [Recovering/Resolving]
  - Face oedema [Unknown]
  - Skin fissures [Unknown]
